FAERS Safety Report 13770864 (Version 2)
Quarter: 2017Q3

REPORT INFORMATION
  Report Type: Spontaneous
  Country: JP (occurrence: JP)
  Receive Date: 20170720
  Receipt Date: 20170817
  Transmission Date: 20171127
  Serious: Yes (Other)
  Sender: FDA-Public Use
  Company Number: JP-SUN PHARMACEUTICAL INDUSTRIES LTD-2017RR-145556

PATIENT
  Sex: Male

DRUGS (4)
  1. RANIMUSTINE [Suspect]
     Active Substance: RANIMUSTINE
     Indication: GLIOBLASTOMA MULTIFORME
     Dosage: 80 MG/M2, 8 CYCLES
     Route: 065
  2. ETOPOSIDE. [Suspect]
     Active Substance: ETOPOSIDE
     Indication: GLIOBLASTOMA MULTIFORME
     Dosage: 80 MG/M2, 8 CYCLES
     Route: 065
  3. INTERFERON-BETA [Suspect]
     Active Substance: INTERFERON BETA
     Indication: GLIOBLASTOMA MULTIFORME
     Dosage: 8 CYCLES
     Route: 065
  4. CARBOPLATIN. [Suspect]
     Active Substance: CARBOPLATIN
     Indication: GLIOBLASTOMA MULTIFORME
     Dosage: 500 MG/M2, 8 CYCLES
     Route: 065

REACTIONS (3)
  - Drug effect incomplete [Unknown]
  - Bone marrow failure [Recovered/Resolved]
  - Anaemia [Recovered/Resolved]
